FAERS Safety Report 4496315-1 (Version None)
Quarter: 2004Q4

REPORT INFORMATION
  Report Type: 
  Country: None (occurrence: None)
  Receive Date: 20041103
  Receipt Date: 20041020
  Transmission Date: 20050328
  Serious: Yes (Death)
  Sender: FDA-Public Use
  Company Number: 2004-03091

PATIENT
  Age: 72 Year
  Sex: Male

DRUGS (2)
  1. IMMUCYST       (BCG - IT (CONNAUGHT)), [Suspect]
     Indication: BLADDER CANCER
     Dosage: B. IN. , BLADDER
     Dates: start: 20040223
  2. OFLOCET [Suspect]
     Dosage: P.O
     Route: 048
     Dates: start: 20040223

REACTIONS (3)
  - HEPATIC NEOPLASM MALIGNANT [None]
  - LUNG NEOPLASM MALIGNANT [None]
  - METASTATIC NEOPLASM [None]
